FAERS Safety Report 9393074 (Version 1)
Quarter: 2013Q3

REPORT INFORMATION
  Report Type: Spontaneous
  Country: PK (occurrence: PK)
  Receive Date: 20130710
  Receipt Date: 20130710
  Transmission Date: 20140515
  Serious: Yes (Death)
  Sender: FDA-Public Use
  Company Number: PK-SANOFI-AVENTIS-2013SA067791

PATIENT
  Age: 29 Month
  Sex: Female

DRUGS (1)
  1. CLAFORAN [Suspect]
     Indication: PNEUMONIA
     Route: 042
     Dates: start: 20130627, end: 20130627

REACTIONS (1)
  - Death [Fatal]
